FAERS Safety Report 15541545 (Version 3)
Quarter: 2018Q4

REPORT INFORMATION
  Report Type: Spontaneous
  Country: US (occurrence: US)
  Receive Date: 20181023
  Receipt Date: 20181212
  Transmission Date: 20190205
  Serious: No
  Sender: FDA-Public Use
  Company Number: US-GLAXOSMITHKLINE-US2018GSK189090

PATIENT
  Sex: Male
  Weight: 77 kg

DRUGS (3)
  1. VENTOLIN HFA [Suspect]
     Active Substance: ALBUTEROL SULFATE
     Indication: CHRONIC OBSTRUCTIVE PULMONARY DISEASE
  2. VENTOLIN HFA [Suspect]
     Active Substance: ALBUTEROL SULFATE
     Indication: EMPHYSEMA
     Dosage: UNK
     Route: 055
  3. ANORO ELLIPTA [Suspect]
     Active Substance: UMECLIDINIUM BROMIDE\VILANTEROL TRIFENATATE
     Indication: CHRONIC OBSTRUCTIVE PULMONARY DISEASE
     Dosage: 62.5/25UG
     Route: 055
     Dates: start: 2016

REACTIONS (5)
  - Suffocation feeling [Unknown]
  - Dyspnoea [Unknown]
  - Drug ineffective [Unknown]
  - Condition aggravated [Unknown]
  - Off label use [Unknown]
